FAERS Safety Report 6453353-7 (Version None)
Quarter: 2009Q4

REPORT INFORMATION
  Report Type: 
  Country: None (occurrence: None)
  Receive Date: 20091123
  Receipt Date: 20091123
  Transmission Date: 20100525
  Serious: Yes (Disabling)
  Sender: FDA-Public Use
  Company Number: None

PATIENT
  Age: 15 Year
  Sex: Female
  Weight: 47.6277 kg

DRUGS (1)
  1. KENALOG-10 [Suspect]
     Indication: ACNE CYSTIC
     Dosage: 0.2 CC ONCE
     Dates: start: 20090708, end: 20090708

REACTIONS (5)
  - ANXIETY [None]
  - LACRIMATION INCREASED [None]
  - PRODUCT QUALITY ISSUE [None]
  - SCAR [None]
  - SKIN DISCOLOURATION [None]
